FAERS Safety Report 11899224 (Version 1)
Quarter: 2016Q1

REPORT INFORMATION
  Report Type: Spontaneous
  Country: US (occurrence: US)
  Receive Date: 20160108
  Receipt Date: 20160108
  Transmission Date: 20160526
  Serious: No
  Sender: FDA-Public Use
  Company Number: US-PFIZER INC-2015445717

PATIENT
  Sex: Female

DRUGS (5)
  1. LISINOPRIL. [Suspect]
     Active Substance: LISINOPRIL
     Dosage: UNK
  2. MORPHINE SULFATE. [Suspect]
     Active Substance: MORPHINE SULFATE
     Dosage: UNK
  3. ARAVA [Suspect]
     Active Substance: LEFLUNOMIDE
     Dosage: UNK
  4. MTX [Suspect]
     Active Substance: METHOTREXATE SODIUM
     Dosage: UNK
  5. DURAGESIC [Suspect]
     Active Substance: FENTANYL
     Dosage: UNK

REACTIONS (1)
  - Drug hypersensitivity [Unknown]
